FAERS Safety Report 5730170-4 (Version None)
Quarter: 2008Q2

REPORT INFORMATION
  Report Type: 
  Country: None (occurrence: None)
  Receive Date: 20080507
  Receipt Date: 20080501
  Transmission Date: 20081010
  Serious: Yes (Hospitalization)
  Sender: FDA-Public Use
  Company Number: GB-AVENTIS-200811798GDDC

PATIENT
  Age: 38 Year
  Sex: Female
  Weight: 86.3 kg

DRUGS (9)
  1. LANTUS [Suspect]
     Route: 058
     Dates: start: 20070321, end: 20070412
  2. SIMVASTATIN [Concomitant]
  3. LISINOPRIL [Concomitant]
  4. METFORMIN HCL [Concomitant]
  5. ANTIHISTAMINES [Concomitant]
  6. LEVEMIR [Concomitant]
     Route: 058
  7. NOVOLOG MIX 70/30 [Concomitant]
     Route: 058
  8. MIXTARD HUMAN 70/30 [Concomitant]
     Route: 058
  9. ACTRAPID [Concomitant]

REACTIONS (5)
  - ABORTION SPONTANEOUS [None]
  - DRUG EXPOSURE DURING PREGNANCY [None]
  - HYPERSENSITIVITY [None]
  - INJECTION SITE PAIN [None]
  - INJECTION SITE PRURITUS [None]
